FAERS Safety Report 8389370-X (Version None)
Quarter: 2012Q2

REPORT INFORMATION
  Report Type: 
  Country: None (occurrence: None)
  Receive Date: 20120528
  Receipt Date: 20120518
  Transmission Date: 20120825
  Serious: No
  Sender: FDA-Public Use
  Company Number: US-BAYER-2012-050665

PATIENT
  Age: 69 Year
  Sex: Male
  Weight: 104.31 kg

DRUGS (4)
  1. CHOLESTEROL MEDICATION [Concomitant]
  2. NAPROXEN SODIUM [Suspect]
     Indication: ARTHRITIS
     Dosage: 2 DF, BID
     Dates: start: 20120425
  3. ANTIHYPERTENSIVES [Concomitant]
  4. ASPIRIN [Concomitant]

REACTIONS (1)
  - NO ADVERSE EVENT [None]
